FAERS Safety Report 20390558 (Version 1)
Quarter: 2022Q1

REPORT INFORMATION
  Report Type: Spontaneous
  Country: PL (occurrence: PL)
  Receive Date: 20220128
  Receipt Date: 20220128
  Transmission Date: 20220423
  Serious: Yes (Other)
  Sender: FDA-Public Use
  Company Number: PL-GLAXOSMITHKLINE-PL2022GSK006049

PATIENT
  Sex: Female

DRUGS (5)
  1. AZITHROMYCIN [Suspect]
     Active Substance: AZITHROMYCIN
     Indication: Bronchitis
     Dosage: 500 MILLIGRAM, 500 MG
  2. PENICILLIN [Suspect]
     Active Substance: PENICILLIN
     Indication: Bronchitis
     Dosage: UNK, (MLN) INTERNATIONAL UNITS (IU)/D
     Route: 030
  3. AMOXICILLIN\CLAVULANATE POTASSIUM [Suspect]
     Active Substance: AMOXICILLIN\CLAVULANATE POTASSIUM
     Indication: Bronchitis
     Dosage: 1750 MILLIGRAM, QD, 1750 MG, 1D
  4. INDAPAMIDE [Concomitant]
     Active Substance: INDAPAMIDE
     Indication: Hypertension
     Dosage: 1.5 MILLIGRAM, QD, 1.5 MG, 1D
  5. FLUCONAZOLE [Concomitant]
     Active Substance: FLUCONAZOLE
     Indication: Antifungal treatment
     Dosage: 150 MILLIGRAM, 150 MG,AT ONE DOSE

REACTIONS (22)
  - Mental impairment [Recovered/Resolved]
  - Suicidal ideation [Recovered/Resolved]
  - Skin burning sensation [Unknown]
  - Circadian rhythm sleep disorder [Unknown]
  - Body temperature increased [Unknown]
  - Dysbiosis [Unknown]
  - Musculoskeletal stiffness [Unknown]
  - Vaginal discharge [Unknown]
  - Genital burning sensation [Unknown]
  - Treatment failure [Unknown]
  - Poor quality sleep [Unknown]
  - Asthenia [Unknown]
  - Pain [Unknown]
  - Pruritus [Unknown]
  - Genital candidiasis [Unknown]
  - Diarrhoea [Unknown]
  - Aphasia [Recovered/Resolved]
  - Depressed mood [Recovered/Resolved]
  - Tension headache [Recovered/Resolved]
  - Depression [Recovered/Resolved]
  - Anxiety [Recovered/Resolved]
  - Dizziness [Recovered/Resolved]
